FAERS Safety Report 10354218 (Version 2)
Quarter: 2014Q3

REPORT INFORMATION
  Report Type: Report from Study
  Country: CA (occurrence: CA)
  Receive Date: 20140731
  Receipt Date: 20140820
  Transmission Date: 20150326
  Serious: Yes (Hospitalization, Other)
  Sender: FDA-Public Use
  Company Number: CA-ABBVIE-14K-028-1264760-00

PATIENT
  Sex: Male
  Weight: 71.4 kg

DRUGS (5)
  1. HUMIRA [Suspect]
     Active Substance: ADALIMUMAB
     Indication: CROHN^S DISEASE
     Route: 058
     Dates: start: 20120720, end: 201406
  2. PREDNISONE. [Concomitant]
     Active Substance: PREDNISONE
     Indication: PRODUCT USED FOR UNKNOWN INDICATION
     Dosage: SEVERAL COURSES
  3. MULTIVITAMIN [Concomitant]
     Active Substance: VITAMINS
     Indication: VITAMIN SUPPLEMENTATION
  4. IMURAN [Concomitant]
     Active Substance: AZATHIOPRINE
     Indication: CROHN^S DISEASE
  5. HUMIRA [Suspect]
     Active Substance: ADALIMUMAB
     Route: 058
     Dates: end: 201406

REACTIONS (6)
  - Crohn^s disease [Unknown]
  - Defaecation urgency [Unknown]
  - Rectal discharge [Unknown]
  - Drug ineffective [Unknown]
  - Frequent bowel movements [Unknown]
  - Gastrointestinal oedema [Unknown]
